FAERS Safety Report 12912955 (Version 1)
Quarter: 2016Q4

REPORT INFORMATION
  Report Type: Spontaneous
  Country: JP (occurrence: JP)
  Receive Date: 20161104
  Receipt Date: 20161104
  Transmission Date: 20170207
  Serious: Yes (Hospitalization, Other)
  Sender: FDA-Public Use
  Company Number: JP-MYLANLABS-2016M1046898

PATIENT

DRUGS (14)
  1. LYRICA [Suspect]
     Active Substance: PREGABALIN
     Indication: NEURALGIA
     Dosage: 450 MG, QD
     Route: 048
     Dates: start: 20131226, end: 20160501
  2. TREAKISYM [Suspect]
     Active Substance: BENDAMUSTINE HYDROCHLORIDE
     Dosage: 100 MG, CYCLE
     Route: 041
     Dates: start: 20160421, end: 20160421
  3. TRAZENTA [Concomitant]
     Active Substance: LINAGLIPTIN
     Indication: DIABETES MELLITUS
     Dosage: 5 MG, QD
     Route: 048
     Dates: start: 2004
  4. TREAKISYM [Suspect]
     Active Substance: BENDAMUSTINE HYDROCHLORIDE
     Indication: MANTLE CELL LYMPHOMA
     Dosage: 100 MG, CYCLE
     Route: 041
     Dates: start: 20160219, end: 20160219
  5. TREAKISYM [Suspect]
     Active Substance: BENDAMUSTINE HYDROCHLORIDE
     Dosage: 100 MG, CYCLE
     Route: 041
     Dates: start: 20160323, end: 20160323
  6. RITUXAN [Concomitant]
     Active Substance: RITUXIMAB
     Dosage: 600 MG (375MG/M2), CYCLE
     Route: 041
     Dates: start: 20160323, end: 20160323
  7. BAKTAR [Concomitant]
     Active Substance: SULFAMETHOXAZOLE\TRIMETHOPRIM
     Indication: INFECTION PROPHYLAXIS
     Dosage: 1 DF, QD
     Route: 048
     Dates: start: 20131217
  8. SEIBULE [Concomitant]
     Active Substance: MIGLITOL
     Indication: DIABETES MELLITUS
     Dosage: 50 MG, QD
     Route: 048
     Dates: start: 2004
  9. TREAKISYM [Suspect]
     Active Substance: BENDAMUSTINE HYDROCHLORIDE
     Dosage: 100 MG, CYCLE
     Route: 041
     Dates: start: 20160220, end: 20160220
  10. RITUXAN [Concomitant]
     Active Substance: RITUXIMAB
     Dosage: 600 MG (375MG/M2), CYCLE
     Route: 041
     Dates: start: 20160420, end: 20160420
  11. ACICLOVIR MYLAN [Suspect]
     Active Substance: ACYCLOVIR
     Indication: PROPHYLAXIS
     Dosage: 200 MG, QD
     Route: 048
     Dates: start: 20160217, end: 20160501
  12. TREAKISYM [Suspect]
     Active Substance: BENDAMUSTINE HYDROCHLORIDE
     Dosage: 100 MG, CYCLE
     Route: 041
     Dates: start: 20160324, end: 20160324
  13. TREAKISYM [Suspect]
     Active Substance: BENDAMUSTINE HYDROCHLORIDE
     Dosage: 100 MG, CYCLE
     Route: 041
     Dates: start: 20160420, end: 20160420
  14. RITUXAN [Concomitant]
     Active Substance: RITUXIMAB
     Indication: LYMPHOMA
     Dosage: 600 MG (375MG/M2), CYCLE
     Route: 041
     Dates: start: 20160218, end: 20160218

REACTIONS (2)
  - Urinary retention [Recovered/Resolved]
  - Cytomegalovirus enterocolitis [Recovered/Resolved]

NARRATIVE: CASE EVENT DATE: 20160425
